FAERS Safety Report 24587285 (Version 1)
Quarter: 2024Q4

REPORT INFORMATION
  Report Type: Spontaneous
  Country: ES (occurrence: ES)
  Receive Date: 20241107
  Receipt Date: 20241107
  Transmission Date: 20250114
  Serious: Yes (Death, Other)
  Sender: AMGEN
  Company Number: ES-AMGEN-ESPSP2024216746

PATIENT

DRUGS (8)
  1. CARFILZOMIB [Suspect]
     Active Substance: CARFILZOMIB
     Indication: Plasma cell myeloma
     Dosage: 20 MILLIGRAM/SQ. METER, CYCLE-1 (28 DAYS OF DURATION) DAYS 1-2
     Route: 040
     Dates: start: 20220901
  2. CARFILZOMIB [Suspect]
     Active Substance: CARFILZOMIB
     Dosage: 56 MILLIGRAM/SQ. METER, CYCLE-1 (28 DAYS OF DURATION) DAYS 8-9 AND 15-16 OF THE CYCLE
     Route: 040
  3. CARFILZOMIB [Suspect]
     Active Substance: CARFILZOMIB
     Dosage: 56 MILLIGRAM/SQ. METER, CYCLES 2-4 DAYS 1-2, 8-9 AND 15-16 OF THE CYCLE
     Route: 040
  4. CARFILZOMIB [Suspect]
     Active Substance: CARFILZOMIB
     Dosage: 70 MILLIGRAM/SQ. METER, CYCLES }4 DAYS 1, 8 AND 15 OF THE CYCLE
     Route: 040
  5. CARFILZOMIB [Suspect]
     Active Substance: CARFILZOMIB
     Dosage: 70 MILLIGRAM/SQ. METER, CYCLES }10 DAYS 1 AND 15 OF THE CYCLE
     Route: 040
  6. CARFILZOMIB [Suspect]
     Active Substance: CARFILZOMIB
     Dosage: 70 MILLIGRAM/SQ. METER, DAY 1 OF THE CYCLE
     Route: 040
  7. ISATUXIMAB [Concomitant]
     Active Substance: ISATUXIMAB
     Indication: Plasma cell myeloma
     Dosage: 10 MILLIGRAM/KILOGRAM, DAYS 1, 8, 15 AND 22, DAYS 1 AND 15, DAY 1 OF THE CYCLE
     Route: 040
     Dates: start: 20220901
  8. DEXAMETHASONE [Concomitant]
     Active Substance: DEXAMETHASONE
     Indication: Plasma cell myeloma
     Dosage: 20 MILLIGRAM, DAYS 1 AND 2, DAYS 1-2, 8-9, 15-16 AND 22-23, DAYS 1-2, 8-9 AND 15-16, DAYS 1, 8 AND 1
     Route: 040
     Dates: start: 20220901

REACTIONS (13)
  - Pneumonia pseudomonal [Fatal]
  - Plasma cell myeloma [Unknown]
  - Neutropenia [Unknown]
  - Thrombocytopenia [Unknown]
  - Pulmonary hypertension [Unknown]
  - Cardiac failure [Unknown]
  - Acute myocardial infarction [Unknown]
  - Thrombosis [Unknown]
  - Hypertension [Unknown]
  - Infusion related reaction [Unknown]
  - Respiratory tract infection [Unknown]
  - Diarrhoea [Unknown]
  - Anaemia [Unknown]
